FAERS Safety Report 25895024 (Version 1)
Quarter: 2025Q4

REPORT INFORMATION
  Report Type: Spontaneous
  Country: CN (occurrence: CN)
  Receive Date: 20251008
  Receipt Date: 20251008
  Transmission Date: 20260118
  Serious: Yes (Hospitalization, Other)
  Sender: BAXTER
  Company Number: None

PATIENT
  Age: 62 Year
  Sex: Male

DRUGS (5)
  1. CYCLOPHOSPHAMIDE [Suspect]
     Active Substance: CYCLOPHOSPHAMIDE
     Indication: Plasma cell myeloma
     Dosage: 2.6 G, QD
     Route: 041
     Dates: start: 20250709
  2. CYCLOPHOSPHAMIDE [Suspect]
     Active Substance: CYCLOPHOSPHAMIDE
     Dosage: 2.5 G, QD
     Route: 041
     Dates: start: 20250809
  3. CYCLOPHOSPHAMIDE [Suspect]
     Active Substance: CYCLOPHOSPHAMIDE
     Dosage: 2.6 G, QD, IMPORTED
     Route: 041
     Dates: start: 20250907, end: 20250908
  4. SODIUM CHLORIDE [Suspect]
     Active Substance: SODIUM CHLORIDE
     Dosage: 250 ML, QD,0.9% SODIUM CHLORIDE
     Route: 041
     Dates: start: 20250907, end: 20250908
  5. MESNA [Suspect]
     Active Substance: MESNA
     Dosage: 0.5 G, QD
     Route: 041
     Dates: start: 20250907, end: 20250908

REACTIONS (1)
  - Myelosuppression [Recovering/Resolving]

NARRATIVE: CASE EVENT DATE: 20250914
